FAERS Safety Report 5624216-1 (Version None)
Quarter: 2008Q1

REPORT INFORMATION
  Report Type: 
  Country: None (occurrence: None)
  Receive Date: 20080213
  Receipt Date: 20080208
  Transmission Date: 20080703
  Serious: Yes (Death)
  Sender: FDA-Public Use
  Company Number: PHBS2007GR11821

PATIENT
  Age: 7 Year
  Sex: Female

DRUGS (10)
  1. PREZOLON [Suspect]
  2. METHYLPREDNISOLONE [Suspect]
  3. KINERET [Suspect]
     Indication: VASCULITIS
     Dosage: 1-2.5 MG/KG/D
     Route: 058
     Dates: start: 20070414, end: 20070420
  4. CORTICOSTEROIDS [Suspect]
     Dates: start: 20010801
  5. METHOTREXATE [Suspect]
     Dates: start: 20010801
  6. CYCLOPHOSPHAMIDE [Suspect]
     Dates: start: 20010801
  7. ENBREL [Suspect]
     Dates: start: 20010801
  8. AZATHIOPRINE [Suspect]
     Dates: start: 20010801
  9. SANDIMMUNE [Suspect]
     Indication: VASCULITIS
     Dosage: UNK, UNK
     Route: 065
     Dates: start: 20010801
  10. GENGRAF [Suspect]
     Dates: start: 20070502, end: 20070504

REACTIONS (11)
  - ACTIVATED PARTIAL THROMBOPLASTIN TIME PROLONGED [None]
  - BLOOD UREA INCREASED [None]
  - FIBRIN D DIMER INCREASED [None]
  - HAEMATOCRIT DECREASED [None]
  - HAEMOGLOBIN DECREASED [None]
  - HISTIOCYTOSIS HAEMATOPHAGIC [None]
  - IMMUNOSUPPRESSION [None]
  - PARVOVIRUS B19 SEROLOGY POSITIVE [None]
  - PARVOVIRUS INFECTION [None]
  - PROTHROMBIN TIME PROLONGED [None]
  - WHITE BLOOD CELL COUNT DECREASED [None]
